FAERS Safety Report 13830320 (Version 2)
Quarter: 2017Q4

REPORT INFORMATION
  Report Type: Spontaneous
  Country: US (occurrence: US)
  Receive Date: 20170803
  Receipt Date: 20171102
  Transmission Date: 20180320
  Serious: No
  Sender: FDA-Public Use
  Company Number: US-SA-2017SA127698

PATIENT
  Age: 56 Year
  Sex: Male
  Weight: 92.53 kg

DRUGS (11)
  1. VITAMINS NOS [Concomitant]
     Active Substance: VITAMINS
     Route: 048
  2. LEVITRA [Concomitant]
     Active Substance: VARDENAFIL HYDROCHLORIDE TRIHYDRATE
     Route: 048
  3. PRALUENT [Suspect]
     Active Substance: ALIROCUMAB
     Indication: HYPERLIPIDAEMIA
     Route: 058
     Dates: start: 20170515, end: 20170618
  4. ALIROCUMAB PREFILLED PEN [Suspect]
     Active Substance: ALIROCUMAB
     Indication: LOW DENSITY LIPOPROTEIN INCREASED
     Dates: start: 20170515, end: 20170618
  5. ALIROCUMAB PREFILLED PEN [Suspect]
     Active Substance: ALIROCUMAB
     Indication: HYPERLIPIDAEMIA
     Dates: start: 20170515, end: 20170618
  6. TESTOSTERONE CYPIONATE. [Concomitant]
     Active Substance: TESTOSTERONE CYPIONATE
     Route: 065
  7. ASA [Concomitant]
     Active Substance: ASPIRIN
     Route: 065
  8. EZETIMIBE. [Concomitant]
     Active Substance: EZETIMIBE
     Route: 048
  9. PRALUENT [Suspect]
     Active Substance: ALIROCUMAB
     Indication: LOW DENSITY LIPOPROTEIN INCREASED
     Route: 058
     Dates: start: 20170515, end: 20170618
  10. HYDROCHLOROTHIAZIDE/VALSARTAN [Concomitant]
     Dosage: DOSE: 320/25 MG
     Route: 048
  11. COQ10 [Concomitant]
     Active Substance: UBIDECARENONE
     Route: 065

REACTIONS (9)
  - Arthralgia [Not Recovered/Not Resolved]
  - Back pain [Not Recovered/Not Resolved]
  - Muscle spasms [Not Recovered/Not Resolved]
  - Chills [Not Recovered/Not Resolved]
  - Myalgia [Not Recovered/Not Resolved]
  - Urine abnormality [Not Recovered/Not Resolved]
  - Musculoskeletal stiffness [Not Recovered/Not Resolved]
  - Decreased appetite [Not Recovered/Not Resolved]
  - Pyrexia [Not Recovered/Not Resolved]

NARRATIVE: CASE EVENT DATE: 201705
